FAERS Safety Report 25502297 (Version 1)
Quarter: 2025Q3

REPORT INFORMATION
  Report Type: Spontaneous
  Country: JP (occurrence: JP)
  Receive Date: 20250702
  Receipt Date: 20250702
  Transmission Date: 20251021
  Serious: Yes (Hospitalization)
  Sender: CSL BEHRING
  Company Number: JP-BEH-2025210785

PATIENT

DRUGS (2)
  1. VELPHORO [Suspect]
     Active Substance: SUCROFERRIC OXYHYDROXIDE
     Dosage: 750 MG, QD
     Route: 048
     Dates: start: 20250311, end: 20250324
  2. VELPHORO [Suspect]
     Active Substance: SUCROFERRIC OXYHYDROXIDE
     Dosage: 1500 MG, QD
     Route: 048
     Dates: start: 20250325

REACTIONS (1)
  - Shunt occlusion [Unknown]

NARRATIVE: CASE EVENT DATE: 20250101
